FAERS Safety Report 16309350 (Version 1)
Quarter: 2019Q2

REPORT INFORMATION
  Report Type: Spontaneous
  Country: US (occurrence: US)
  Receive Date: 20190514
  Receipt Date: 20190514
  Transmission Date: 20190711
  Serious: No
  Sender: FDA-Public Use
  Company Number: US-PERRIGO-19US003109

PATIENT
  Age: 76 Year
  Sex: Female
  Weight: 58.05 kg

DRUGS (5)
  1. OLOPATADINE HYDROCHLORIDE. [Suspect]
     Active Substance: OLOPATADINE HYDROCHLORIDE
     Indication: SINUSITIS
     Dosage: 1 SPRAY, IN EACH NOSTRIL, SINGLE
     Route: 045
     Dates: start: 20190305, end: 20190305
  2. DEXILANT [Concomitant]
     Active Substance: DEXLANSOPRAZOLE
     Indication: GASTROOESOPHAGEAL REFLUX DISEASE
     Dosage: UNK
     Route: 065
  3. OMNARIS [Concomitant]
     Active Substance: CICLESONIDE
     Indication: SINUSITIS
     Dosage: UNK, QAM
     Route: 065
  4. OMNARIS [Concomitant]
     Active Substance: CICLESONIDE
     Indication: HYPERSENSITIVITY
  5. RAMIPRIL. [Concomitant]
     Active Substance: RAMIPRIL
     Indication: HYPERTENSION
     Dosage: UNK
     Route: 065

REACTIONS (3)
  - Throat irritation [Recovered/Resolved]
  - Off label use [Recovered/Resolved]
  - Oesophageal pain [Not Recovered/Not Resolved]

NARRATIVE: CASE EVENT DATE: 20190305
